FAERS Safety Report 24013946 (Version 1)
Quarter: 2024Q2

REPORT INFORMATION
  Report Type: Spontaneous
  Country: US (occurrence: US)
  Receive Date: 20240626
  Receipt Date: 20240626
  Transmission Date: 20240716
  Serious: Yes (Hospitalization, Other)
  Sender: FDA-Public Use
  Company Number: US-BRISTOL-MYERS SQUIBB COMPANY-2024-097616

PATIENT
  Age: 53 Year
  Sex: Male
  Weight: 61.69 kg

DRUGS (3)
  1. SPRYCEL [Suspect]
     Active Substance: DASATINIB
     Indication: Myelofibrosis
     Route: 048
     Dates: start: 20240610
  2. OMEPRAZOLE [Concomitant]
     Active Substance: DONEPEZIL HYDROCHLORIDE\OMEPRAZOLE\OMEPRAZOLE MAGNESIUM
     Indication: Gastrointestinal disorder
  3. HYDROXYUREA [Concomitant]
     Active Substance: HYDROXYUREA
     Indication: White blood cell count increased

REACTIONS (4)
  - Red blood cell count decreased [Recovering/Resolving]
  - Off label use [Unknown]
  - Ocular hyperaemia [Unknown]
  - Musculoskeletal chest pain [Unknown]
